FAERS Safety Report 14514391 (Version 1)
Quarter: 2018Q1

REPORT INFORMATION
  Report Type: Spontaneous
  Country: CN (occurrence: CN)
  Receive Date: 20180209
  Receipt Date: 20180209
  Transmission Date: 20180509
  Serious: Yes (Hospitalization, Other)
  Sender: FDA-Public Use
  Company Number: CN-009507513-1802CHN001818

PATIENT
  Age: 70 Year
  Sex: Male
  Weight: 66.5 kg

DRUGS (6)
  1. PROSCAR [Suspect]
     Active Substance: FINASTERIDE
     Indication: BENIGN PROSTATIC HYPERPLASIA
     Dosage: 1 TABLET DAILLY
     Route: 048
     Dates: start: 20161201, end: 20170412
  2. CAFFEINE. [Suspect]
     Active Substance: CAFFEINE
  3. CHLORPHENIRAMINE MALEATE. [Suspect]
     Active Substance: CHLORPHENIRAMINE MALEATE
  4. ACETAMINOPHEN. [Suspect]
     Active Substance: ACETAMINOPHEN
     Indication: NASOPHARYNGITIS
     Dosage: 1 TABLET, TWICE A DAY
     Route: 048
     Dates: start: 20170321, end: 20170328
  5. AMANTADINE HYDROCHLORIDE. [Suspect]
     Active Substance: AMANTADINE HYDROCHLORIDE
  6. BOS TAURUS GALLSTONE [Suspect]
     Active Substance: BOS TAURUS GALLSTONE

REACTIONS (3)
  - Jaundice [None]
  - Nasopharyngitis [None]
  - Hepatic function abnormal [Recovering/Resolving]

NARRATIVE: CASE EVENT DATE: 20170401
